FAERS Safety Report 19009058 (Version 1)
Quarter: 2021Q1

REPORT INFORMATION
  Report Type: Spontaneous
  Country: US (occurrence: US)
  Receive Date: 20210316
  Receipt Date: 20210316
  Transmission Date: 20210420
  Serious: Yes (Death)
  Sender: FDA-Public Use
  Company Number: US-ROCHE-2790598

PATIENT
  Age: 56 Year
  Sex: Male

DRUGS (2)
  1. ESBRIET [Suspect]
     Active Substance: PIRFENIDONE
     Indication: IDIOPATHIC PULMONARY FIBROSIS
     Route: 048
     Dates: start: 201612, end: 202103
  2. OFEV [Concomitant]
     Active Substance: NINTEDANIB
     Dosage: SHIPPED ONCE
     Dates: start: 20201217

REACTIONS (1)
  - Death [Fatal]

NARRATIVE: CASE EVENT DATE: 20210304
